FAERS Safety Report 22137211 (Version 2)
Quarter: 2023Q2

REPORT INFORMATION
  Report Type: Report from Study
  Country: US (occurrence: US)
  Receive Date: 20230324
  Receipt Date: 20230621
  Transmission Date: 20230722
  Serious: Yes (Other)
  Sender: FDA-Public Use
  Company Number: US-ABBVIE-4697071

PATIENT
  Age: 68 Year
  Sex: Female

DRUGS (3)
  1. HUMIRA [Suspect]
     Active Substance: ADALIMUMAB
     Indication: Rheumatoid arthritis
     Dosage: FORM STRENGTH: 40 MILLIGRAM
     Route: 058
     Dates: start: 20180315
  2. CELEBREX [Concomitant]
     Active Substance: CELECOXIB
     Indication: Analgesic therapy
  3. EZETIMIBE [Suspect]
     Active Substance: EZETIMIBE
     Indication: Product used for unknown indication
     Dosage: 10 MG DAILY
     Route: 065
     Dates: start: 20230306

REACTIONS (25)
  - Fractured coccyx [Unknown]
  - Immunodeficiency [Unknown]
  - Arthropathy [Unknown]
  - Contusion [Unknown]
  - Illness [Unknown]
  - Injection site haemorrhage [Unknown]
  - Blast injury [Unknown]
  - Breast pain [Unknown]
  - Injection site pain [Unknown]
  - Breast injury [Unknown]
  - Back pain [Unknown]
  - Arthralgia [Unknown]
  - Hypoaesthesia [Unknown]
  - Pain [Unknown]
  - Pain in extremity [Unknown]
  - Pulmonary congestion [Unknown]
  - Maternal exposure during pregnancy [Unknown]
  - Influenza like illness [Unknown]
  - Brain fog [Unknown]
  - Asthenia [Unknown]
  - Pulmonary pain [Unknown]
  - Mobility decreased [Unknown]
  - Loss of personal independence in daily activities [Unknown]
  - Arthralgia [Unknown]
  - Fatigue [Unknown]

NARRATIVE: CASE EVENT DATE: 20221201
